FAERS Safety Report 5041263-1 (Version None)
Quarter: 2006Q2

REPORT INFORMATION
  Report Type: 
  Country: None (occurrence: None)
  Receive Date: 20060626
  Receipt Date: 20060618
  Transmission Date: 20061013
  Serious: Yes (Other)
  Sender: FDA-Public Use
  Company Number: 2006077033

PATIENT
  Age: 21 Year
  Sex: Male

DRUGS (2)
  1. UNISOM [Suspect]
     Indication: ACCIDENTAL EXPOSURE
     Dosage: 6 SLEEPGELS ONCE, ORAL
     Route: 048
     Dates: start: 20060618, end: 20060618
  2. ETHANOL (ETHANOL) [Suspect]
     Dosage: 1/2 A FIFTH OF VODKA, ORAL
     Route: 048
     Dates: start: 20060618, end: 20060618

REACTIONS (4)
  - ACCIDENTAL EXPOSURE [None]
  - ALCOHOL USE [None]
  - GAIT DISTURBANCE [None]
  - INCORRECT DOSE ADMINISTERED [None]
